FAERS Safety Report 9747659 (Version 1)
Quarter: 2013Q4

REPORT INFORMATION
  Report Type: Spontaneous
  Country: TR (occurrence: None)
  Receive Date: 20131206
  Receipt Date: 20131206
  Transmission Date: 20140711
  Serious: Yes (Other)
  Sender: FDA-Public Use
  Company Number: 2013P1021604

PATIENT
  Age: 67 Year
  Sex: Female

DRUGS (1)
  1. OXCARBAZEPINE [Suspect]

REACTIONS (1)
  - Atrioventricular block complete [None]
